FAERS Safety Report 25888875 (Version 1)
Quarter: 2025Q4

REPORT INFORMATION
  Report Type: Spontaneous
  Country: US (occurrence: US)
  Receive Date: 20251007
  Receipt Date: 20251007
  Transmission Date: 20260118
  Serious: Yes (Hospitalization, Other)
  Sender: ALEMBIC
  Company Number: US-ALEMBIC PHARMACUETICALS LIMITED-2025SCAL001268

PATIENT

DRUGS (2)
  1. HYDROCHLOROTHIAZIDE\LOSARTAN POTASSIUM [Interacting]
     Active Substance: HYDROCHLOROTHIAZIDE\LOSARTAN POTASSIUM
     Indication: Hypertension
     Dosage: 100/25 MG QD
     Route: 065
  2. TIRZEPATIDE [Interacting]
     Active Substance: TIRZEPATIDE
     Indication: Type 2 diabetes mellitus
     Dosage: 2.5 MILLIGRAM
     Route: 058

REACTIONS (17)
  - Hypercalcaemia [Recovering/Resolving]
  - Asthenia [Unknown]
  - Mental status changes [Unknown]
  - Fatigue [Unknown]
  - Constipation [Unknown]
  - Polyuria [Unknown]
  - Confusional state [Unknown]
  - Hyporesponsive to stimuli [Recovered/Resolved]
  - Dehydration [Unknown]
  - Heart rate increased [Unknown]
  - Blood pressure increased [Unknown]
  - Lethargy [Unknown]
  - Blood parathyroid hormone decreased [Unknown]
  - Blood thyroid stimulating hormone decreased [Unknown]
  - Vitamin D decreased [Unknown]
  - Blood creatinine increased [Unknown]
  - Drug interaction [Unknown]
